FAERS Safety Report 5480788-1 (Version None)
Quarter: 2007Q3

REPORT INFORMATION
  Report Type: 
  Country: None (occurrence: None)
  Receive Date: 20070917
  Receipt Date: 20070727
  Transmission Date: 20080115
  Serious: Yes (Other)
  Sender: FDA-Public Use
  Company Number: BDI-009844

PATIENT
  Age: 63 Year
  Sex: Female
  Weight: 95 kg

DRUGS (5)
  1. MULTIHANCE [Suspect]
     Indication: DEAFNESS UNILATERAL
     Dosage: 20 ML ONCE IV
     Route: 042
     Dates: start: 20070726, end: 20070726
  2. MULTIHANCE [Suspect]
     Indication: NUCLEAR MAGNETIC RESONANCE IMAGING
     Dosage: 20 ML ONCE IV
     Route: 042
     Dates: start: 20070726, end: 20070726
  3. SYNTHROID [Concomitant]
  4. CHOLESTEROL LOWERING DRUG [Concomitant]
  5. BENADRYL [Concomitant]

REACTIONS (4)
  - DYSPNOEA [None]
  - LIP SWELLING [None]
  - PHARYNGEAL OEDEMA [None]
  - URTICARIA [None]
